FAERS Safety Report 21336725 (Version 1)
Quarter: 2022Q3

REPORT INFORMATION
  Report Type: Spontaneous
  Country: US (occurrence: None)
  Receive Date: 20220914
  Receipt Date: 20220914
  Transmission Date: 20221027
  Serious: Yes (Death)
  Sender: FDA-Public Use
  Company Number: None

PATIENT
  Age: 26 Year
  Sex: Male
  Weight: 63 kg

DRUGS (3)
  1. .DELTA.8-TETRAHYDROCANNABINOL\HERBALS [Suspect]
     Active Substance: .DELTA.8-TETRAHYDROCANNABINOL\HERBALS
     Dates: start: 20220806, end: 20220813
  2. .DELTA.9-TETRAHYDROCANNABINOL ACETATE\HERBALS [Suspect]
     Active Substance: .DELTA.9-TETRAHYDROCANNABINOL ACETATE\HERBALS
     Dates: start: 20220806
  3. .DELTA.10-TETRAHYDROCANNABINOL\HERBALS [Suspect]
     Active Substance: .DELTA.10-TETRAHYDROCANNABINOL\HERBALS
     Dates: start: 20220806

REACTIONS (3)
  - Drug dependence [None]
  - Substance use [None]
  - Abnormal behaviour [None]

NARRATIVE: CASE EVENT DATE: 20220813
